FAERS Safety Report 8728674 (Version 6)
Quarter: 2012Q4

REPORT INFORMATION
  Report Type: 
  Country: GB (occurrence: GB)
  Receive Date: 20120817
  Receipt Date: 20121210
  Transmission Date: 20130627
  Serious: Yes (Hospitalization, Other)
  Sender: FDA-Public Use
  Company Number: PHFR2012GB004515

PATIENT
  Age: 34 Year
  Sex: Male

DRUGS (5)
  1. CLOZARIL (CLOZAPINE) [Suspect]
     Dosage: 100 mg, BID
     Route: 048
     Dates: start: 2008, end: 20120521
  2. RIFABUTIN [Interacting]
     Indication: TUBERCULOSIS
     Dosage: UNK UKN, UNK
     Route: 048
  3. ETHAMBUTOL [Concomitant]
     Indication: TUBERCULOSIS
     Route: 048
  4. PYRAZINAMIDE [Concomitant]
     Indication: TUBERCULOSIS
     Dosage: UNK UKN, UNK
     Route: 048
  5. ISONIAZID [Concomitant]
     Indication: TUBERCULOSIS
     Dosage: UNK UKN, UNK
     Route: 048

REACTIONS (6)
  - Antipsychotic drug level increased [Recovered/Resolved]
  - Tuberculosis [Recovering/Resolving]
  - White blood cell count decreased [Recovered/Resolved]
  - Neutrophil count decreased [Recovered/Resolved]
  - Drug interaction [Unknown]
  - Haemoglobin decreased [Unknown]
